FAERS Safety Report 13288855 (Version 2)
Quarter: 2017Q1

REPORT INFORMATION
  Report Type: Spontaneous
  Country: US (occurrence: US)
  Receive Date: 20170302
  Receipt Date: 20170316
  Transmission Date: 20170428
  Serious: No
  Sender: FDA-Public Use
  Company Number: US-PFIZER INC-2017088615

PATIENT
  Sex: Male

DRUGS (1)
  1. ZOLOFT [Suspect]
     Active Substance: SERTRALINE HYDROCHLORIDE
     Dosage: UNK
     Dates: start: 201702

REACTIONS (3)
  - Ejaculation delayed [Unknown]
  - Diarrhoea [Unknown]
  - Apathy [Unknown]

NARRATIVE: CASE EVENT DATE: 201702
